FAERS Safety Report 5678103-3 (Version None)
Quarter: 2008Q1

REPORT INFORMATION
  Report Type: 
  Country: None (occurrence: None)
  Receive Date: 20080319
  Receipt Date: 20080305
  Transmission Date: 20080703
  Serious: Yes (Death, Life-Threatening)
  Sender: FDA-Public Use
  Company Number: SPV1-2008-00360

PATIENT
  Age: 21 Year
  Sex: Male
  Weight: 22 kg

DRUGS (3)
  1. IDURSULFASE(IDURSULFASE) CONCENTRATE FOR SOLUTION FOR INFUSION [Suspect]
     Indication: MUCOPOLYSACCHARIDOSIS II
     Dosage: 12 MG, 1X/WEEK, IV DRIP
     Route: 042
     Dates: start: 20080111, end: 20080212
  2. CARBOCISTEINE (CARBOCISTEINE) [Concomitant]
  3. CLARITHROMYCIN [Concomitant]

REACTIONS (7)
  - BLOOD UREA INCREASED [None]
  - CARDIAC FAILURE [None]
  - HEPATIC ENZYME INCREASED [None]
  - PULMONARY CONGESTION [None]
  - RESPIRATORY FAILURE [None]
  - URINE OUTPUT DECREASED [None]
  - WHITE BLOOD CELL COUNT INCREASED [None]
